FAERS Safety Report 11870671 (Version 1)
Quarter: 2015Q4

REPORT INFORMATION
  Report Type: Spontaneous
  Country: None (occurrence: None)
  Receive Date: 20151223
  Receipt Date: 20151223
  Transmission Date: 20160305
  Serious: Yes (Hospitalization)
  Sender: FDA-Public Use
  Company Number: None

PATIENT
  Age: 4 Year
  Sex: Female

DRUGS (1)
  1. BACZOL [Suspect]
     Active Substance: GUAIFENESIN\PHENYLEPHRINE HYDROCHLORIDE
     Indication: OROPHARYNGEAL PAIN
     Dates: start: 20151220, end: 20151221

REACTIONS (3)
  - Urticaria [None]
  - Angioedema [None]
  - Hypersensitivity [None]

NARRATIVE: CASE EVENT DATE: 20151221
